FAERS Safety Report 4492599-4 (Version None)
Quarter: 2004Q4

REPORT INFORMATION
  Report Type: 
  Country: None (occurrence: None)
  Receive Date: 20041029
  Receipt Date: 20041015
  Transmission Date: 20050328
  Serious: No
  Sender: FDA-Public Use
  Company Number: 2004AP04306

PATIENT
  Age: 78 Year
  Sex: Female

DRUGS (8)
  1. IRESSA [Suspect]
     Indication: LUNG NEOPLASM MALIGNANT
     Dosage: 250 MG DAILY PO
     Route: 048
     Dates: start: 20030331, end: 20030531
  2. IRESSA [Suspect]
     Indication: LUNG NEOPLASM MALIGNANT
     Dosage: 250MG QOD PO
     Route: 048
     Dates: start: 20030601, end: 20030630
  3. IRESSA [Suspect]
     Indication: LUNG NEOPLASM MALIGNANT
     Dosage: 250 MG Q3D PO
     Route: 048
     Dates: start: 20030701, end: 20030831
  4. IRESSA [Suspect]
     Indication: LUNG NEOPLASM MALIGNANT
     Dosage: 250 MG DAILY PO
     Route: 048
     Dates: start: 20030901, end: 20031224
  5. NAVELBINE ^ASTRA MEDICA^ [Concomitant]
  6. GEMZAR [Concomitant]
  7. IRINOTECAN HCL [Concomitant]
  8. RADIATION THERAPY [Concomitant]

REACTIONS (3)
  - DRUG EFFECT DECREASED [None]
  - ENANTHEMA [None]
  - SKIN ULCER [None]
